FAERS Safety Report 23721980 (Version 2)
Quarter: 2024Q2

REPORT INFORMATION
  Report Type: Report from Study
  Country: US (occurrence: US)
  Receive Date: 20240409
  Receipt Date: 20240429
  Transmission Date: 20240716
  Serious: Yes (Other)
  Sender: FDA-Public Use
  Company Number: US-HORIZON THERAPEUTICS-HZN-2024-000680

PATIENT

DRUGS (6)
  1. TEPEZZA [Suspect]
     Active Substance: TEPROTUMUMAB-TRBW
     Indication: Endocrine ophthalmopathy
     Dosage: UNK, FIRST INFUSION
     Route: 042
     Dates: start: 20231218
  2. TEPEZZA [Suspect]
     Active Substance: TEPROTUMUMAB-TRBW
     Dosage: UNK, SECOND INFUSION
     Route: 042
     Dates: start: 20240108
  3. TEPEZZA [Suspect]
     Active Substance: TEPROTUMUMAB-TRBW
     Dosage: UNK, THIRD INFUSION
     Route: 042
     Dates: start: 20240129
  4. TEPEZZA [Suspect]
     Active Substance: TEPROTUMUMAB-TRBW
     Dosage: UNK, FIFTH INFUSION
     Route: 042
     Dates: start: 20240311
  5. TEPEZZA [Suspect]
     Active Substance: TEPROTUMUMAB-TRBW
     Dosage: UNK, SIXTH INFUSION
     Route: 042
     Dates: start: 20240401
  6. TEPEZZA [Suspect]
     Active Substance: TEPROTUMUMAB-TRBW
     Dosage: UNK, SEVENTH INFUSION
     Route: 042
     Dates: start: 20240422

REACTIONS (14)
  - Diabetes mellitus [Not Recovered/Not Resolved]
  - Abdominal discomfort [Unknown]
  - Myalgia [Not Recovered/Not Resolved]
  - Gingival recession [Not Recovered/Not Resolved]
  - Ear discomfort [Not Recovered/Not Resolved]
  - Gingival pain [Unknown]
  - Bone disorder [Unknown]
  - Muscle disorder [Unknown]
  - Fatigue [Not Recovered/Not Resolved]
  - Muscle spasms [Not Recovered/Not Resolved]
  - Diarrhoea [Not Recovered/Not Resolved]
  - Tinnitus [Not Recovered/Not Resolved]
  - Headache [Not Recovered/Not Resolved]
  - Blood glucose increased [Unknown]

NARRATIVE: CASE EVENT DATE: 20240101
